FAERS Safety Report 7082909-6 (Version None)
Quarter: 2010Q4

REPORT INFORMATION
  Report Type: 
  Country: None (occurrence: None)
  Receive Date: 20101104
  Receipt Date: 20101026
  Transmission Date: 20110411
  Serious: Yes (Hospitalization)
  Sender: FDA-Public Use
  Company Number: US-JNJFOC-20101007607

PATIENT
  Sex: Female
  Weight: 63.5 kg

DRUGS (1)
  1. INVEGA [Suspect]
     Indication: ILL-DEFINED DISORDER
     Route: 048

REACTIONS (9)
  - DIARRHOEA [None]
  - EAR DISCOMFORT [None]
  - HYPERGLYCAEMIA [None]
  - MUSCLE SPASMS [None]
  - SINUS CONGESTION [None]
  - SWOLLEN TONGUE [None]
  - THROAT TIGHTNESS [None]
  - TINNITUS [None]
  - VOMITING [None]
